FAERS Safety Report 15982684 (Version 2)
Quarter: 2019Q1

REPORT INFORMATION
  Report Type: Spontaneous
  Country: CH (occurrence: CH)
  Receive Date: 20190219
  Receipt Date: 20190304
  Transmission Date: 20190418
  Serious: Yes (Hospitalization)
  Sender: FDA-Public Use
  Company Number: CH-PFIZER INC-2019065572

PATIENT
  Age: 78 Year
  Sex: Male
  Weight: 73 kg

DRUGS (21)
  1. PANTOZOL [Concomitant]
     Active Substance: PANTOPRAZOLE SODIUM
     Dosage: 20 MG, 1X/DAY (TABL. 40 MG, 0,5-0-0-0)
  2. EFFENTORA [Suspect]
     Active Substance: FENTANYL CITRATE
     Dosage: 200 UG, 2X/DAY ((4 PCS.) I.R. SO FAR TAKEN 2 PIECES IN THE MORNING)
  3. CALCIMAGON D3 [Concomitant]
     Active Substance: CALCIUM\CHOLECALCIFEROL
     Dosage: 500 MG, 1X/DAY (500MG/300U, 1-0-0-0)
  4. VORICONAZOL SANDOZ [Suspect]
     Active Substance: VORICONAZOLE
     Indication: ASPERGILLUS INFECTION
     Dosage: 400-600 MG, 1X/DAY (EXCEPT 20JAN)
     Route: 042
     Dates: start: 20190118, end: 20190121
  5. FRAGMIN [Concomitant]
     Active Substance: DALTEPARIN SODIUM
     Dosage: 15000 IU, 1X/DAY (1-0-0-0, 08.00)
  6. MARCOUMAR [Concomitant]
     Active Substance: PHENPROCOUMON
     Dosage: 3 MG, UNK
  7. BACTRIM [Concomitant]
     Active Substance: SULFAMETHOXAZOLE\TRIMETHOPRIM
     Dosage: 3 DF, WEEKLY *800/160MG,  1-0-0-0 MO,WED,FR )
  8. PALLADONE [Concomitant]
     Active Substance: HYDROMORPHONE HYDROCHLORIDE
     Dosage: 4 MG, 2X/DAY (1-0-1-0)
  9. TORASEMID SANDOZ ECO [Concomitant]
     Active Substance: TORSEMIDE
     Dosage: 10 MG, 1X/DAY (1-0-0-0)
  10. VORICONAZOL SANDOZ [Suspect]
     Active Substance: VORICONAZOLE
     Dosage: 200 MG, UNK
     Route: 048
     Dates: start: 20190122, end: 20190122
  11. VITAMIN D3 STREULI [Concomitant]
     Active Substance: CHOLECALCIFEROL
     Dosage: 4000 IU/ML, WEEKLY (2-0-0-0 SA)
  12. VORICONAZOL SANDOZ [Suspect]
     Active Substance: VORICONAZOLE
     Dosage: 400 MG, UNK
     Route: 048
     Dates: start: 20190123, end: 20190123
  13. MOVICOL [Concomitant]
     Active Substance: POLYETHYLENE GLYCOL 3350\POTASSIUM CHLORIDE\SODIUM BICARBONATE\SODIUM CHLORIDE
     Dosage: UNK UNK, 2X/DAY (SACHET, 1-0-1-0)
  14. B12 ANKERMANN [Concomitant]
     Dosage: 1 MG, 1X/DAY (1-0-0-0)
  15. PALLADONE [Concomitant]
     Active Substance: HYDROMORPHONE HYDROCHLORIDE
     Dosage: 8 MG, 2X/DAY (1-0-1-0)
  16. FOLIC ACID. [Concomitant]
     Active Substance: FOLIC ACID
     Dosage: 5 MG, 1X/DAY (1-0-0-0)
  17. SPIRICORT [Concomitant]
     Active Substance: PREDNISOLONE
     Dosage: 40 MG, 1X/DAY (20 MG 2-0-0-0)
  18. VFEND [Suspect]
     Active Substance: VORICONAZOLE
     Indication: ASPERGILLUS INFECTION
     Dosage: 400 MG, UNK
     Route: 042
     Dates: start: 20190120
  19. VIDAZA [Suspect]
     Active Substance: AZACITIDINE
     Dosage: UNK
  20. SAROTEN RETARD [Concomitant]
     Active Substance: AMITRIPTYLINE
     Dosage: 25 MG, 1X/DAY (0-0-1-0 )
  21. CONCOR [Concomitant]
     Active Substance: BISOPROLOL FUMARATE
     Dosage: 2.5 MG, 1X/DAY (1-0-0-0)

REACTIONS (7)
  - Abnormal behaviour [Unknown]
  - Somnolence [Not Recovered/Not Resolved]
  - Disturbance in attention [Not Recovered/Not Resolved]
  - Ataxia [Not Recovered/Not Resolved]
  - Confusional state [Unknown]
  - Hallucination, visual [Not Recovered/Not Resolved]
  - Diarrhoea [Not Recovered/Not Resolved]

NARRATIVE: CASE EVENT DATE: 20190125
